FAERS Safety Report 8325600-8 (Version None)
Quarter: 2012Q2

REPORT INFORMATION
  Report Type: 
  Country: None (occurrence: None)
  Receive Date: 20120501
  Receipt Date: 20120418
  Transmission Date: 20120825
  Serious: Yes (Hospitalization)
  Sender: FDA-Public Use
  Company Number: JP-JNJFOC-20111202071

PATIENT
  Age: 36 Year
  Sex: Male

DRUGS (4)
  1. PREDNISOLONE [Suspect]
     Indication: RHEUMATOID ARTHRITIS
     Dates: start: 20090601
  2. REMICADE [Suspect]
     Indication: RHEUMATOID ARTHRITIS
     Route: 042
     Dates: start: 20101001
  3. METHOTREXATE [Suspect]
     Indication: RHEUMATOID ARTHRITIS
     Route: 048
     Dates: start: 20090601
  4. REMICADE [Suspect]
     Dosage: PT HAD A TOTAL OF 2 INFUSIONS
     Route: 042
     Dates: start: 20101101

REACTIONS (1)
  - LYMPH NODE TUBERCULOSIS [None]
